FAERS Safety Report 8109576-4 (Version None)
Quarter: 2012Q1

REPORT INFORMATION
  Report Type: 
  Country: None (occurrence: None)
  Receive Date: 20120202
  Receipt Date: 20120113
  Transmission Date: 20120608
  Serious: No
  Sender: FDA-Public Use
  Company Number: US-AMGEN-USASP2011065054

PATIENT
  Age: 31 Year
  Sex: Female
  Weight: 74.376 kg

DRUGS (1)
  1. ENBREL [Suspect]
     Indication: PSORIASIS
     Dosage: 50 MG, QWK
     Route: 058
     Dates: start: 20110713

REACTIONS (2)
  - MALAISE [None]
  - UPPER RESPIRATORY TRACT INFECTION [None]
